FAERS Safety Report 17420490 (Version 1)
Quarter: 2020Q1

REPORT INFORMATION
  Report Type: Spontaneous
  Country: US (occurrence: US)
  Receive Date: 20200214
  Receipt Date: 20200214
  Transmission Date: 20200409
  Serious: Yes (Other)
  Sender: FDA-Public Use
  Company Number: US-MYLANLABS-2020M1016032

PATIENT
  Age: 28 Year
  Sex: Female

DRUGS (2)
  1. FUROSEMIDE. [Suspect]
     Active Substance: FUROSEMIDE
     Indication: HYPERPARATHYROIDISM PRIMARY
     Route: 048
  2. CALCITONIN SALMON. [Suspect]
     Active Substance: CALCITONIN SALMON
     Indication: HYPERPARATHYROIDISM PRIMARY
     Dosage: UNK
     Route: 042

REACTIONS (2)
  - Drug ineffective [Unknown]
  - Maternal exposure during pregnancy [Recovered/Resolved]
